FAERS Safety Report 9925022 (Version 2)
Quarter: 2014Q1

REPORT INFORMATION
  Report Type: Spontaneous
  Country: BE (occurrence: None)
  Receive Date: 20140221
  Receipt Date: 20140226
  Transmission Date: 20141002
  Serious: No
  Sender: FDA-Public Use
  Company Number: 2014BE0075

PATIENT
  Age: 22 Year
  Sex: Female

DRUGS (1)
  1. ORFADIN [Suspect]
     Indication: TYROSINAEMIA
     Dosage: 30 MG (30 MG, 1 IN 1 D)
     Dates: start: 19940127

REACTIONS (4)
  - Abortion spontaneous [None]
  - Twin pregnancy [None]
  - Maternal drugs affecting foetus [None]
  - Maternal exposure during pregnancy [None]
